FAERS Safety Report 16065727 (Version 1)
Quarter: 2019Q1

REPORT INFORMATION
  Report Type: Spontaneous
  Country: US (occurrence: US)
  Receive Date: 20190313
  Receipt Date: 20190313
  Transmission Date: 20190418
  Serious: No
  Sender: FDA-Public Use
  Company Number: US-ASTRAZENECA-2019SE25754

PATIENT
  Sex: Female

DRUGS (1)
  1. BYDUREON BCISE [Suspect]
     Active Substance: EXENATIDE
     Indication: DIABETES MELLITUS INADEQUATE CONTROL
     Route: 058

REACTIONS (4)
  - Blood glucose abnormal [Unknown]
  - Product dose omission [Unknown]
  - Wrong technique in device usage process [Not Recovered/Not Resolved]
  - Device leakage [Unknown]
